FAERS Safety Report 8381319-9 (Version None)
Quarter: 2012Q2

REPORT INFORMATION
  Report Type: 
  Country: None (occurrence: None)
  Receive Date: 20120523
  Receipt Date: 20120521
  Transmission Date: 20120825
  Serious: Yes (Death)
  Sender: FDA-Public Use
  Company Number: US-PFIZER INC-2012112470

PATIENT
  Sex: Male

DRUGS (2)
  1. RAPAMUNE [Suspect]
     Indication: IMMUNOSUPPRESSANT DRUG THERAPY
     Dosage: 1 MG, ALTERNATE DAY
     Dates: start: 20101028
  2. TACROLIMUS [Concomitant]
     Indication: IMMUNOSUPPRESSANT DRUG THERAPY
     Dosage: 2 MG, 2X/DAY

REACTIONS (1)
  - DEATH [None]
